FAERS Safety Report 5390447-1 (Version None)
Quarter: 2007Q3

REPORT INFORMATION
  Report Type: 
  Country: None (occurrence: None)
  Receive Date: 20070718
  Receipt Date: 20070521
  Transmission Date: 20080115
  Serious: No
  Sender: FDA-Public Use
  Company Number: US-KINGPHARMUSA00001-K200700622

PATIENT

DRUGS (3)
  1. LEVOXYL [Suspect]
     Indication: HYPOTHYROIDISM
     Dosage: 125 MCG, QD
     Route: 048
     Dates: start: 19990101
  2. LEVOXYL [Suspect]
     Dosage: 137 MCG, QD
  3. LEVOXYL [Suspect]
     Dosage: 125 MCG, QD
     Dates: end: 20070519

REACTIONS (7)
  - EAR PRURITUS [None]
  - ECZEMA [None]
  - EYE PRURITUS [None]
  - HYPERSENSITIVITY [None]
  - THROAT IRRITATION [None]
  - THYROID FUNCTION TEST ABNORMAL [None]
  - URINE ANALYSIS ABNORMAL [None]
